FAERS Safety Report 7061328-2 (Version None)
Quarter: 2010Q4

REPORT INFORMATION
  Report Type: 
  Country: None (occurrence: None)
  Receive Date: 20101026
  Receipt Date: 20101015
  Transmission Date: 20110411
  Serious: No
  Sender: FDA-Public Use
  Company Number: US-B.I. PHARMACEUTICALS,INC./RIDGEFIELD-2010-BP-10331BP

PATIENT
  Sex: Female

DRUGS (10)
  1. SPIRIVA [Suspect]
     Indication: CHRONIC OBSTRUCTIVE PULMONARY DISEASE
     Dosage: 18 MCG
     Route: 055
     Dates: start: 20100711
  2. SPIRIVA [Suspect]
     Indication: DYSPNOEA
     Dosage: 18 MCG
     Route: 055
     Dates: start: 20100908
  3. SEREVENT [Concomitant]
     Indication: CHRONIC OBSTRUCTIVE PULMONARY DISEASE
     Route: 055
  4. OXYGEN [Concomitant]
     Indication: CHRONIC OBSTRUCTIVE PULMONARY DISEASE
     Route: 045
  5. DIOVAN [Concomitant]
  6. PEPCID [Concomitant]
     Dosage: 40 MG
  7. LEVOTHYROXINE SODIUM [Concomitant]
  8. ATIVAN [Concomitant]
  9. VITAMINS [Concomitant]
  10. ASPIRIN [Concomitant]
     Dosage: 81 MG

REACTIONS (9)
  - ABNORMAL SENSATION IN EYE [None]
  - CATARACT [None]
  - EYE DISORDER [None]
  - EYE IRRITATION [None]
  - EYE MOVEMENT DISORDER [None]
  - MYOPIA [None]
  - VISUAL FIELD DEFECT [None]
  - VISUAL IMPAIRMENT [None]
  - VITREOUS FLOATERS [None]
